FAERS Safety Report 4520917-7 (Version None)
Quarter: 2004Q4

REPORT INFORMATION
  Report Type: 
  Country: None (occurrence: None)
  Receive Date: 20041206
  Receipt Date: 20041206
  Transmission Date: 20050328
  Serious: Yes (Life-Threatening, Hospitalization, Other)
  Sender: FDA-Public Use
  Company Number: None

PATIENT
  Sex: Female
  Weight: 65.7716 kg

DRUGS (3)
  1. EFFEXOR XL  75 MG WYETH PHARMACEUTICALS [Suspect]
     Indication: DEPRESSION
     Dosage: 1 DAY ORAL
     Route: 048
  2. ACCUTANE [Concomitant]
  3. ORTHO TRI-CYCLEN [Concomitant]

REACTIONS (8)
  - DEPRESSION [None]
  - DISORIENTATION [None]
  - DIZZINESS [None]
  - LIBIDO DECREASED [None]
  - MEDICATION ERROR [None]
  - MEMORY IMPAIRMENT [None]
  - NAUSEA [None]
  - SUICIDAL IDEATION [None]
